FAERS Safety Report 7652799-9 (Version None)
Quarter: 2011Q3

REPORT INFORMATION
  Report Type: 
  Country: None (occurrence: None)
  Receive Date: 20110728
  Receipt Date: 20110712
  Transmission Date: 20111222
  Serious: Yes (Hospitalization, Disabling)
  Sender: FDA-Public Use
  Company Number: GGEL20110700697

PATIENT
  Age: 65 Year
  Sex: Male
  Weight: 86 kg

DRUGS (5)
  1. RASAGILINE MESYLATE (RASAGILINE) [Concomitant]
  2. ROPINIROLE [Suspect]
     Indication: PARKINSON'S DISEASE
     Dosage: 750 MICROGRAMS, 3 IN 1 D, ORAL USE
     Route: 048
     Dates: start: 20000721
  3. REQUIP XL [Suspect]
     Indication: PARKINSON'S DISEASE
     Dosage: 36 MILLIGRAM, 1 IN 1 D, ORAL USE
     Route: 048
     Dates: start: 20080828, end: 20101201
  4. CO-CARELDOPA (CARBIDOPA, LEVODOPA) (CARBIDOPA, LEVODOPA) [Concomitant]
  5. SINEMET (CARBIDOPA, CARBIDOPA MONOHYDRATE, LEVODOPA) (CARBIDOPA, CARBI [Concomitant]

REACTIONS (20)
  - AGGRESSION [None]
  - PARANOIA [None]
  - SUICIDAL IDEATION [None]
  - EUPHORIC MOOD [None]
  - EXCESSIVE EXERCISE [None]
  - VOYEURISM [None]
  - PANIC ATTACK [None]
  - SUDDEN ONSET OF SLEEP [None]
  - DELUSION [None]
  - DEPENDENCE [None]
  - DISTURBANCE IN SEXUAL AROUSAL [None]
  - DEPRESSION [None]
  - DRUG WITHDRAWAL SYNDROME [None]
  - ORTHOSTATIC HYPOTENSION [None]
  - ABNORMAL BEHAVIOUR [None]
  - PERSONALITY CHANGE [None]
  - OVERDOSE [None]
  - SOMNOLENCE [None]
  - OBSESSIVE-COMPULSIVE DISORDER [None]
  - HYPERSEXUALITY [None]
